FAERS Safety Report 10076812 (Version 1)
Quarter: 2014Q2

REPORT INFORMATION
  Report Type: Spontaneous
  Country: DE (occurrence: DE)
  Receive Date: 20140414
  Receipt Date: 20140414
  Transmission Date: 20141212
  Serious: Yes (Life-Threatening, Hospitalization)
  Sender: FDA-Public Use
  Company Number: DE-UCBSA-117414

PATIENT
  Age: 61 Year
  Sex: Male
  Weight: 80 kg

DRUGS (3)
  1. VIMPAT [Suspect]
     Dates: start: 20140301, end: 201403
  2. LAMOTRIGINE [Concomitant]
     Dosage: 150MG STRENGTH
  3. LEVETIRACETAM [Concomitant]
     Dosage: 3G

REACTIONS (1)
  - Atrioventricular block complete [Recovering/Resolving]
